FAERS Safety Report 5682350-4 (Version None)
Quarter: 2008Q1

REPORT INFORMATION
  Report Type: 
  Country: None (occurrence: None)
  Receive Date: 20080327
  Receipt Date: 20080318
  Transmission Date: 20080703
  Serious: Yes (Hospitalization)
  Sender: FDA-Public Use
  Company Number: US-JNJFOC-20080305130

PATIENT
  Sex: Female
  Weight: 74.39 kg

DRUGS (4)
  1. RISPERDAL [Suspect]
     Indication: SCHIZOAFFECTIVE DISORDER
     Route: 048
  2. ZOLOFT [Concomitant]
     Indication: OBSESSIVE-COMPULSIVE DISORDER
     Route: 048
  3. CLONOPIN [Concomitant]
     Indication: ANXIETY
  4. RESTORIL [Concomitant]
     Indication: SLEEP DISORDER

REACTIONS (4)
  - AMENORRHOEA [None]
  - BLOOD SODIUM DECREASED [None]
  - GALACTORRHOEA [None]
  - POLYDIPSIA [None]
